FAERS Safety Report 6787605-8 (Version None)
Quarter: 2010Q2

REPORT INFORMATION
  Report Type: 
  Country: None (occurrence: None)
  Receive Date: 20100623
  Receipt Date: 20070612
  Transmission Date: 20101027
  Serious: Yes (Other)
  Sender: FDA-Public Use
  Company Number: US-PFIZER INC-2007048810

PATIENT
  Age: 27 Year
  Sex: Male

DRUGS (2)
  1. EPIRUBICIN HYDROCHLORIDE [Suspect]
  2. XELODA [Concomitant]

REACTIONS (1)
  - ATRIAL FIBRILLATION [None]
